FAERS Safety Report 7707180-0 (Version None)
Quarter: 2011Q3

REPORT INFORMATION
  Report Type: 
  Country: None (occurrence: None)
  Receive Date: 20110819
  Receipt Date: 20110725
  Transmission Date: 20111222
  Serious: Yes (Other)
  Sender: FDA-Public Use
  Company Number: 1010686

PATIENT
  Age: 71 Year
  Sex: Male
  Weight: 85 kg

DRUGS (1)
  1. DOBUTAMINE HCL [Suspect]
     Indication: CARDIAC FAILURE CONGESTIVE
     Dosage: APPROXIMATELY 45 ML, NOT REPORTED IV DRIP
     Route: 041
     Dates: start: 20110720, end: 20110720

REACTIONS (4)
  - INFUSION SITE PAIN [None]
  - INJECTION SITE HAEMATOMA [None]
  - INFUSION SITE SWELLING [None]
  - INFUSION SITE EXTRAVASATION [None]
